FAERS Safety Report 11855345 (Version 4)
Quarter: 2017Q2

REPORT INFORMATION
  Report Type: Report from Study
  Country: FR (occurrence: FR)
  Receive Date: 20151221
  Receipt Date: 20170512
  Transmission Date: 20170829
  Serious: Yes (Death, Hospitalization, Other)
  Sender: FDA-Public Use
  Company Number: PHHY2015FR165990

PATIENT
  Age: 65 Year
  Sex: Female

DRUGS (5)
  1. DUROGESIC [Concomitant]
     Active Substance: FENTANYL
     Indication: PAIN
     Dosage: 50 UG, UNK
     Route: 065
     Dates: start: 20151119
  2. DUROGESIC [Concomitant]
     Active Substance: FENTANYL
     Dosage: 30 UG, UNK
     Route: 065
     Dates: start: 20151119
  3. AFINITOR [Suspect]
     Active Substance: EVEROLIMUS
     Indication: INVASIVE BREAST CARCINOMA
     Dosage: 10 MG, QD
     Route: 048
     Dates: start: 20150514, end: 20151118
  4. EXEMESTANE. [Suspect]
     Active Substance: EXEMESTANE
     Indication: BREAST CANCER
     Dosage: 25 MG, QD
     Route: 048
     Dates: start: 20140514
  5. STILNOX [Concomitant]
     Active Substance: ZOLPIDEM TARTRATE
     Indication: INSOMNIA
     Dosage: 10 MG, QD (DAILY)
     Route: 065
     Dates: start: 20151118

REACTIONS (10)
  - Lung disorder [Fatal]
  - Blood glucose increased [Unknown]
  - Pneumocystis jirovecii pneumonia [Fatal]
  - Rales [Fatal]
  - Musculoskeletal pain [Unknown]
  - Malignant neoplasm progression [Unknown]
  - Respiratory distress [Fatal]
  - Dyspnoea [Fatal]
  - Pneumonitis [Fatal]
  - Arthralgia [Unknown]

NARRATIVE: CASE EVENT DATE: 201509
